FAERS Safety Report 5064411-6 (Version None)
Quarter: 2006Q3

REPORT INFORMATION
  Report Type: 
  Country: None (occurrence: None)
  Receive Date: 20060728
  Receipt Date: 20060403
  Transmission Date: 20061208
  Serious: Yes (Other)
  Sender: FDA-Public Use
  Company Number: US-BRISTOL-MYERS SQUIBB COMPANY-13334669

PATIENT
  Age: 62 Year
  Sex: Male
  Weight: 73 kg

DRUGS (8)
  1. GLUCOPHAGE [Suspect]
     Indication: DIABETES MELLITUS
     Dates: start: 20000101
  2. TRANDOLAPRIL [Concomitant]
  3. ISORBIDE [Concomitant]
  4. GLIPIZIDE [Concomitant]
  5. PLAVIX [Concomitant]
  6. METOPROLOL TARTRATE [Concomitant]
  7. ZOCOR [Concomitant]
  8. LANTUS [Concomitant]

REACTIONS (3)
  - BLOOD CREATININE INCREASED [None]
  - PROTEIN URINE PRESENT [None]
  - RENAL FAILURE [None]
